FAERS Safety Report 5131736-5 (Version None)
Quarter: 2006Q4

REPORT INFORMATION
  Report Type: 
  Country: None (occurrence: None)
  Receive Date: 20061013
  Receipt Date: 20061009
  Transmission Date: 20070319
  Serious: Yes (Hospitalization)
  Sender: FDA-Public Use
  Company Number: FRWYE160109OCT06

PATIENT
  Age: 24 Year
  Sex: Female

DRUGS (4)
  1. ETHINYL ESTRADIOL AND LEVONORGESTREL [Suspect]
     Indication: ORAL CONTRACEPTION
     Dosage: 1 TABLET 1X PER 1 DAY ORAL
     Route: 048
     Dates: start: 20050915, end: 20060622
  2. LEVONORGESTREL + ETHINYL ESTRADIOL [Suspect]
     Dosage: 1 TABLET 1X PER 1 DAY ORAL
     Route: 048
     Dates: start: 20050701, end: 20050914
  3. STEDIRIL (NORGESTREL/ETHINYL ESTRADIOL, TABLET, 0) [Suspect]
     Indication: ORAL CONTRACEPTION
     Dosage: 1 TABLET 1X PER 1 DAY ORAL
     Route: 048
     Dates: start: 20050601, end: 20050701
  4. STEDIRIL (NORGESTREL/ETHINYL ESTRADIOL, TABLET, 0) [Suspect]
     Indication: ORAL CONTRACEPTION
     Dosage: 1 TABLET 1X PER 1 DAY
     Dates: end: 20020101

REACTIONS (3)
  - CHOLANGITIS SCLEROSING [None]
  - CYTOLYTIC HEPATITIS [None]
  - JAUNDICE CHOLESTATIC [None]
